FAERS Safety Report 7596106-9 (Version None)
Quarter: 2011Q3

REPORT INFORMATION
  Report Type: 
  Country: None (occurrence: None)
  Receive Date: 20110707
  Receipt Date: 20110705
  Transmission Date: 20111222
  Serious: Yes (Other)
  Sender: FDA-Public Use
  Company Number: US-PFIZER INC-2011085013

PATIENT
  Sex: Male
  Weight: 91.156 kg

DRUGS (5)
  1. CHANTIX [Suspect]
     Indication: SMOKING CESSATION THERAPY
     Dosage: 0.5 MG, 1X/DAY
     Route: 048
     Dates: start: 20110401, end: 20110401
  2. CHANTIX [Interacting]
     Indication: DYSPNOEA
     Dosage: 1 MG, 2X/DAY
     Route: 048
     Dates: start: 20110401, end: 20110611
  3. NADOLOL [Interacting]
     Indication: WOLFF-PARKINSON-WHITE SYNDROME
     Dosage: 40 MG, 1X/DAY AT NIGHT
     Dates: start: 19860101
  4. LABETALOL [Concomitant]
     Dosage: 40 MG, UNK
  5. LOVASTATIN [Interacting]
     Indication: BLOOD CHOLESTEROL INCREASED
     Dosage: 20 MG, DAILY

REACTIONS (4)
  - RESPIRATORY TRACT INFECTION [None]
  - DRUG INTERACTION [None]
  - EXTRASYSTOLES [None]
  - CARDIAC FLUTTER [None]
